FAERS Safety Report 17970354 (Version 1)
Quarter: 2020Q3

REPORT INFORMATION
  Report Type: Spontaneous
  Country: US (occurrence: US)
  Receive Date: 20200702
  Receipt Date: 20200702
  Transmission Date: 20201103
  Serious: No
  Sender: FDA-Public Use
  Company Number: US-ALEXION PHARMACEUTICALS INC.-A202009003

PATIENT
  Age: 50 Year
  Sex: Female

DRUGS (2)
  1. SOLIRIS [Suspect]
     Active Substance: ECULIZUMAB
     Indication: NEUROMYELITIS OPTICA SPECTRUM DISORDER
     Dosage: UNK
     Route: 042
     Dates: start: 202002
  2. SOLIRIS [Suspect]
     Active Substance: ECULIZUMAB
     Dosage: 30 MINS Q2W
     Route: 042

REACTIONS (2)
  - Incorrect product administration duration [Unknown]
  - Therapeutic response unexpected [Unknown]
